FAERS Safety Report 5907708-7 (Version None)
Quarter: 2008Q4

REPORT INFORMATION
  Report Type: 
  Country: None (occurrence: None)
  Receive Date: 20081003
  Receipt Date: 20080211
  Transmission Date: 20090506
  Serious: Yes (Death)
  Sender: FDA-Public Use
  Company Number: KR-ROCHE-548331

PATIENT

DRUGS (5)
  1. CAPECITABINE [Suspect]
     Indication: GASTRIC CANCER
     Dosage: GIVEN ON DAYS 1 - 15 EVERY 3 WEEK CYCLE.
     Route: 048
  2. PACLITAXEL [Suspect]
     Indication: GASTRIC CANCER
     Dosage: GIVEN ON DAY 1 EVERY 3 WEEK CYCLE.
     Route: 042
  3. DEXAMETHASONE [Concomitant]
  4. DIPHENHYDRAMINE HCL [Concomitant]
  5. RANITIDINE [Concomitant]

REACTIONS (1)
  - DEATH [None]
